FAERS Safety Report 8618582-2 (Version None)
Quarter: 2012Q3

REPORT INFORMATION
  Report Type: 
  Country: None (occurrence: None)
  Receive Date: 20120824
  Receipt Date: 20120821
  Transmission Date: 20120928
  Serious: No
  Sender: FDA-Public Use
  Company Number: US-PFIZER INC-2012205586

PATIENT
  Age: 66 Year

DRUGS (6)
  1. MORPHINE SULFATE [Suspect]
     Dosage: UNK
  2. VANCOMYCIN HCL [Suspect]
     Dosage: UNK
  3. LISINOPRIL [Suspect]
     Dosage: UNK
  4. FOSAMAX [Suspect]
     Dosage: UNK
  5. PRAVACHOL [Suspect]
     Dosage: UNK
  6. LEVAQUIN [Suspect]
     Dosage: UNK

REACTIONS (1)
  - DRUG HYPERSENSITIVITY [None]
